FAERS Safety Report 4347853-3 (Version None)
Quarter: 2004Q2

REPORT INFORMATION
  Report Type: 
  Country: None (occurrence: None)
  Receive Date: 20040422
  Receipt Date: 20040415
  Transmission Date: 20050107
  Serious: Yes (Hospitalization)
  Sender: FDA-Public Use
  Company Number: US012950

PATIENT
  Age: 59 Year
  Sex: Female

DRUGS (4)
  1. GABITRIL [Suspect]
     Indication: ANXIETY
     Dosage: 4 MG QHS ORAL
     Route: 048
     Dates: start: 20040114, end: 20040209
  2. GABITRIL [Suspect]
     Indication: ANXIETY
     Dosage: 52 MG QD ORAL
     Route: 048
     Dates: start: 20040210, end: 20040212
  3. FOSAMAX [Concomitant]
  4. LEXAPRO [Concomitant]

REACTIONS (1)
  - CONVULSION [None]
